FAERS Safety Report 8977603 (Version 2)
Quarter: 2012Q4

REPORT INFORMATION
  Report Type: Report from Study
  Country: US (occurrence: US)
  Receive Date: 20121220
  Receipt Date: 20121227
  Transmission Date: 20130627
  Serious: Yes (Hospitalization)
  Sender: FDA-Public Use
  Company Number: US-GLAXOSMITHKLINE-A1005937A

PATIENT
  Age: 51 Year
  Sex: Male
  Weight: 106.8 kg

DRUGS (3)
  1. PAZOPANIB [Suspect]
     Indication: RENAL CELL CARCINOMA
     Dosage: 800MG Per day
     Route: 048
     Dates: start: 20121126
  2. PRILOSEC [Concomitant]
  3. PERCOCET [Concomitant]

REACTIONS (1)
  - Pharyngitis [Recovered/Resolved]
